FAERS Safety Report 10978774 (Version 1)
Quarter: 2015Q2

REPORT INFORMATION
  Report Type: Spontaneous
  Country: CA (occurrence: CA)
  Receive Date: 20150402
  Receipt Date: 20150402
  Transmission Date: 20150821
  Serious: Yes (Other)
  Sender: FDA-Public Use
  Company Number: CA-JNJFOC-20150318792

PATIENT

DRUGS (2)
  1. REACTINE EXTRA STRENGTH LIQUID GELS [Suspect]
     Active Substance: CETIRIZINE HYDROCHLORIDE
     Indication: MULTIPLE ALLERGIES
     Dosage: EVERY DAY
     Route: 048
  2. REACTINE EXTRA STRENGTH LIQUID GELS [Suspect]
     Active Substance: CETIRIZINE HYDROCHLORIDE
     Route: 048

REACTIONS (2)
  - Coeliac disease [Unknown]
  - Inappropriate schedule of drug administration [Unknown]
